FAERS Safety Report 7001564-4 (Version None)
Quarter: 2010Q3

REPORT INFORMATION
  Report Type: 
  Country: None (occurrence: None)
  Receive Date: 20100920
  Receipt Date: 20100909
  Transmission Date: 20110219
  Serious: Yes (Hospitalization)
  Sender: FDA-Public Use
  Company Number: US-AMGEN-KDL437367

PATIENT
  Sex: Female

DRUGS (1)
  1. ENBREL [Suspect]
     Indication: RHEUMATOID ARTHRITIS
     Route: 058
     Dates: end: 20100906

REACTIONS (24)
  - APHONIA [None]
  - ARTHRALGIA [None]
  - BACK PAIN [None]
  - CHEST PAIN [None]
  - CHROMATURIA [None]
  - DECREASED APPETITE [None]
  - EPISTAXIS [None]
  - FATIGUE [None]
  - GOITRE [None]
  - HEADACHE [None]
  - HEART RATE DECREASED [None]
  - HEPATOMEGALY [None]
  - HYPOPHAGIA [None]
  - HYPOTENSION [None]
  - INSOMNIA [None]
  - JAUNDICE [None]
  - JOINT SWELLING [None]
  - LYMPHADENOPATHY [None]
  - MOBILITY DECREASED [None]
  - MUSCLE SPASMS [None]
  - PALLOR [None]
  - PRURITUS [None]
  - PYREXIA [None]
  - VISION BLURRED [None]
